FAERS Safety Report 5042110-4 (Version None)
Quarter: 2006Q2

REPORT INFORMATION
  Report Type: 
  Country: None (occurrence: None)
  Receive Date: 20060627
  Receipt Date: 20060609
  Transmission Date: 20061013
  Serious: Yes (Hospitalization)
  Sender: FDA-Public Use
  Company Number: US-2006-004859

PATIENT
  Age: 59 Year
  Sex: Female
  Weight: 59 kg

DRUGS (5)
  1. BETASERON [Suspect]
     Indication: MULTIPLE SCLEROSIS
     Dosage: 8 MIU, EVERY 2D, SUBCUTANEOUS
     Route: 058
     Dates: start: 20050517
  2. CORTICOSTEROIDS FOR SYSTEMIC USE() [Suspect]
     Indication: MULTIPLE SCLEROSIS
     Dosage: INTRAVENOUS
     Route: 042
     Dates: start: 20060213, end: 20060218
  3. MINOCYCLINE HCL [Concomitant]
  4. PROTONIX [Concomitant]
  5. PAXIL [Concomitant]

REACTIONS (7)
  - DYSPNOEA [None]
  - FLATULENCE [None]
  - LARGE INTESTINE PERFORATION [None]
  - MULTIPLE SCLEROSIS [None]
  - ORAL INTAKE REDUCED [None]
  - PULMONARY EMBOLISM [None]
  - VOMITING [None]
